FAERS Safety Report 7621744-4 (Version None)
Quarter: 2011Q3

REPORT INFORMATION
  Report Type: 
  Country: None (occurrence: None)
  Receive Date: 20110719
  Receipt Date: 20110714
  Transmission Date: 20111222
  Serious: Yes (Hospitalization)
  Sender: FDA-Public Use
  Company Number: IT-BRISTOL-MYERS SQUIBB COMPANY-15905052

PATIENT
  Age: 74 Year
  Sex: Male

DRUGS (4)
  1. ALMARYTM [Concomitant]
     Dosage: 1DF:2 UNITS ALMARYTM 100MG
  2. ATENOLOL [Concomitant]
  3. LEXOTAN [Concomitant]
     Dosage: 1DF:2.5MG/L ORAL DROPS
     Route: 048
  4. COUMADIN [Suspect]
     Indication: ARRHYTHMIA
     Dosage: INTERRUPTED ON 26JUN11
     Route: 048
     Dates: start: 20110501

REACTIONS (4)
  - SUBDURAL HAEMATOMA [None]
  - FALL [None]
  - HEAD INJURY [None]
  - COMA [None]
